FAERS Safety Report 19014374 (Version 1)
Quarter: 2021Q1

REPORT INFORMATION
  Report Type: Spontaneous
  Country: CA (occurrence: CA)
  Receive Date: 20210316
  Receipt Date: 20210316
  Transmission Date: 20210420
  Serious: Yes (Life-Threatening)
  Sender: FDA-Public Use
  Company Number: CA-ROCHE-2788306

PATIENT
  Age: 9 Year
  Sex: Male
  Weight: 32 kg

DRUGS (25)
  1. RITUXAN [Suspect]
     Active Substance: RITUXIMAB
     Indication: BURKITT^S LYMPHOMA
     Route: 042
  2. SODIUM PICOSULFATE [Concomitant]
     Active Substance: SODIUM PICOSULFATE
  3. HYDROCORTISONE. [Concomitant]
     Active Substance: HYDROCORTISONE
  4. ALTEPLASE. [Concomitant]
     Active Substance: ALTEPLASE
  5. BETAMETHASONE. [Concomitant]
     Active Substance: BETAMETHASONE
  6. VALACYCLOVIR [Concomitant]
     Active Substance: VALACYCLOVIR HYDROCHLORIDE
  7. POLYETHYLENE GLYCOL [Concomitant]
     Active Substance: POLYETHYLENE GLYCOLS
  8. AMLODIPINE [Concomitant]
     Active Substance: AMLODIPINE BESYLATE
  9. FILGRASTIM [Concomitant]
     Active Substance: FILGRASTIM
  10. FISH OIL [Concomitant]
     Active Substance: FISH OIL
  11. FLUTICASONE. [Concomitant]
     Active Substance: FLUTICASONE
  12. METHOTREXATE. [Suspect]
     Active Substance: METHOTREXATE
     Indication: BURKITT^S LYMPHOMA
     Route: 042
  13. PIPERACILLIN AND TAZOBACTAM [Concomitant]
     Active Substance: PIPERACILLIN SODIUM\TAZOBACTAM SODIUM
  14. ONDANSETRON [Concomitant]
     Active Substance: ONDANSETRON
  15. MYCAMINE [Concomitant]
     Active Substance: MICAFUNGIN SODIUM
  16. MAGNESIUM [Concomitant]
     Active Substance: MAGNESIUM
  17. FLUCONAZOLE. [Concomitant]
     Active Substance: FLUCONAZOLE
  18. BISACODYL. [Concomitant]
     Active Substance: BISACODYL
  19. DIPHENHYDRAMINE. [Concomitant]
     Active Substance: DIPHENHYDRAMINE
  20. POTASSIUM [Concomitant]
     Active Substance: POTASSIUM
  21. PENTAMIDINE ISETHIONATE. [Concomitant]
     Active Substance: PENTAMIDINE ISETHIONATE
  22. HYDROCORTISONE. [Concomitant]
     Active Substance: HYDROCORTISONE
  23. TACROLIMUS. [Concomitant]
     Active Substance: TACROLIMUS
  24. LEUCOVORIN. [Concomitant]
     Active Substance: LEUCOVORIN
  25. CYTARABINE. [Suspect]
     Active Substance: CYTARABINE
     Indication: BURKITT^S LYMPHOMA
     Route: 042

REACTIONS (4)
  - Diarrhoea [Recovered/Resolved]
  - Febrile neutropenia [Recovered/Resolved]
  - Rectal haemorrhage [Recovered/Resolved]
  - Body temperature fluctuation [Recovered/Resolved]
